FAERS Safety Report 9366036 (Version 1)
Quarter: 2013Q2

REPORT INFORMATION
  Report Type: Spontaneous
  Country: US (occurrence: US)
  Receive Date: 20130625
  Receipt Date: 20130625
  Transmission Date: 20140414
  Serious: Yes (Other)
  Sender: FDA-Public Use
  Company Number: US-COVIDIEN/TYCO HEALTHCARE/MALLINCKRODT-T201203803

PATIENT
  Age: 41 Year
  Sex: Female

DRUGS (3)
  1. TRAMADOL [Suspect]
     Indication: PAIN
     Dosage: 50 MG, TWO TABLETS, QID
     Route: 048
     Dates: start: 20121004
  2. DILAUDID [Concomitant]
     Indication: PAIN
     Dosage: UNK
     Dates: start: 20121002
  3. TRAMADOL [Concomitant]
     Dosage: 100 MG, 3-4 TIMES PER DAY
     Dates: start: 201205, end: 201209

REACTIONS (1)
  - Anaphylactic reaction [Recovered/Resolved]
